FAERS Safety Report 19458645 (Version 1)
Quarter: 2021Q2

REPORT INFORMATION
  Report Type: Other
  Country: ES (occurrence: ES)
  Receive Date: 20210624
  Receipt Date: 20210624
  Transmission Date: 20210717
  Serious: Yes (Death, Other)
  Sender: FDA-Public Use
  Company Number: ES-ROCHE-2850339

PATIENT

DRUGS (32)
  1. RIBAVIRIN. [Suspect]
     Active Substance: RIBAVIRIN
     Indication: HEPATITIS C
  2. OMBITASVIR;PARITAPREVIR;RITONAVIR [Suspect]
     Active Substance: OMBITASVIR\PARITAPREVIR\RITONAVIR
     Indication: HIV INFECTION
     Route: 065
  3. OMBITASVIR;PARITAPREVIR;RITONAVIR [Suspect]
     Active Substance: OMBITASVIR\PARITAPREVIR\RITONAVIR
     Indication: HEPATITIS C
  4. PIBRENTASVIR [Suspect]
     Active Substance: PIBRENTASVIR
     Indication: HIV INFECTION
     Route: 065
  5. LAMIVUDINE. [Suspect]
     Active Substance: LAMIVUDINE
     Indication: HEPATITIS C
  6. SOFOSBUVIR [Suspect]
     Active Substance: SOFOSBUVIR
     Indication: HIV INFECTION
     Route: 065
  7. ELBASVIR. [Suspect]
     Active Substance: ELBASVIR
     Indication: HIV INFECTION
     Route: 065
  8. LAMIVUDINE. [Suspect]
     Active Substance: LAMIVUDINE
     Indication: HIV INFECTION
     Route: 065
  9. SOFOSBUVIR [Suspect]
     Active Substance: SOFOSBUVIR
     Indication: HEPATITIS C
  10. LEDIPASVIR [Suspect]
     Active Substance: LEDIPASVIR
     Indication: HEPATITIS C
  11. DASABUVIR [Suspect]
     Active Substance: DASABUVIR
     Indication: HIV INFECTION
     Route: 065
  12. VELPATASVIR [Suspect]
     Active Substance: VELPATASVIR
     Indication: HIV INFECTION
     Route: 065
  13. EMTRICITABINE [Suspect]
     Active Substance: EMTRICITABINE
     Indication: HIV INFECTION
     Route: 065
  14. TENOFOVIR [Suspect]
     Active Substance: TENOFOVIR
     Indication: HIV INFECTION
     Route: 065
  15. LEDIPASVIR [Suspect]
     Active Substance: LEDIPASVIR
     Indication: HIV INFECTION
     Route: 065
  16. VELPATASVIR [Suspect]
     Active Substance: VELPATASVIR
     Indication: HEPATITIS C
  17. PIBRENTASVIR [Suspect]
     Active Substance: PIBRENTASVIR
     Indication: HEPATITIS C
  18. GRAZOPREVIR. [Suspect]
     Active Substance: GRAZOPREVIR
     Indication: HIV INFECTION
     Route: 065
  19. ELBASVIR. [Suspect]
     Active Substance: ELBASVIR
     Indication: HEPATITIS C
  20. EMTRICITABINE [Suspect]
     Active Substance: EMTRICITABINE
     Indication: HEPATITIS C
  21. DASABUVIR [Suspect]
     Active Substance: DASABUVIR
     Indication: HEPATITIS C
  22. GLECAPREVIR [Suspect]
     Active Substance: GLECAPREVIR
     Indication: HEPATITIS C
  23. GRAZOPREVIR. [Suspect]
     Active Substance: GRAZOPREVIR
     Indication: HEPATITIS C
  24. ABACAVIR. [Suspect]
     Active Substance: ABACAVIR
     Indication: HIV INFECTION
     Route: 065
  25. ABACAVIR. [Suspect]
     Active Substance: ABACAVIR
     Indication: HEPATITIS C
  26. RIBAVIRIN. [Suspect]
     Active Substance: RIBAVIRIN
     Indication: HIV INFECTION
     Route: 065
  27. GLECAPREVIR [Suspect]
     Active Substance: GLECAPREVIR
     Indication: HIV INFECTION
     Route: 065
  28. TENOFOVIR [Suspect]
     Active Substance: TENOFOVIR
     Indication: HEPATITIS C
  29. SIMEPREVIR [Suspect]
     Active Substance: SIMEPREVIR
     Indication: HIV INFECTION
     Route: 065
  30. SIMEPREVIR [Suspect]
     Active Substance: SIMEPREVIR
     Indication: HEPATITIS C
  31. DACLATASVIR. [Suspect]
     Active Substance: DACLATASVIR
     Indication: HIV INFECTION
     Route: 065
  32. DACLATASVIR. [Suspect]
     Active Substance: DACLATASVIR
     Indication: HEPATITIS C

REACTIONS (14)
  - Diarrhoea [Unknown]
  - Dermatitis [Unknown]
  - Drug ineffective [Unknown]
  - Cardiovascular disorder [Unknown]
  - Hyperbilirubinaemia [Unknown]
  - Headache [Unknown]
  - Gilbert^s syndrome [Unknown]
  - Hepatic failure [Fatal]
  - Infection [Fatal]
  - Gastrointestinal disorder [Unknown]
  - Anaemia [Unknown]
  - Hypertransaminasaemia [Unknown]
  - Mental disorder [Unknown]
  - Fatigue [Unknown]
